FAERS Safety Report 6171816-9 (Version None)
Quarter: 2009Q2

REPORT INFORMATION
  Report Type: 
  Country: None (occurrence: None)
  Receive Date: 20090429
  Receipt Date: 20090424
  Transmission Date: 20091009
  Serious: Yes (Life-Threatening)
  Sender: FDA-Public Use
  Company Number: IN-ROCHE-628842

PATIENT
  Sex: Male
  Weight: 44 kg

DRUGS (11)
  1. METHOXY POLYETHYLENE GLYCOL-EPOETIN BETA [Suspect]
     Dosage: DOSAGE FORM:SOLUTION IN SINGLE DOSE PREFILLED SYRINGE,DATE OF LAAST DOSE PRIOR TO SAE:13 APRIL 2009.
     Route: 042
     Dates: start: 20090217
  2. AFLAMIN [Concomitant]
     Dates: start: 20070115
  3. BECOSULES [Concomitant]
     Dates: start: 20070618
  4. PANTOCID [Concomitant]
     Dates: start: 20070612
  5. SHELCAL [Concomitant]
     Dates: start: 20080826
  6. AMLODIPINE [Concomitant]
     Dosage: DRUG:AMLONG
     Dates: start: 20011201
  7. MINIPRESS [Concomitant]
     Dates: start: 20070115
  8. ATORVA [Concomitant]
     Dates: start: 20070612
  9. WYSOLONE [Concomitant]
     Dates: start: 20020118
  10. ROCALTROL [Concomitant]
     Dates: start: 20050826
  11. ETOSCOL [Concomitant]
     Dosage: DRUG NAME REPORTED: ETOSHINE.
     Dates: start: 20090417, end: 20090420

REACTIONS (2)
  - ACCELERATED HYPERTENSION [None]
  - PYREXIA [None]
